FAERS Safety Report 8844619 (Version 2)
Quarter: 2012Q4

REPORT INFORMATION
  Report Type: 
  Country: US (occurrence: US)
  Receive Date: 20121017
  Receipt Date: 20121127
  Transmission Date: 20130627
  Serious: No
  Sender: FDA-Public Use
  Company Number: US-PFIZER INC-2012258089

PATIENT
  Sex: Female

DRUGS (1)
  1. LYRICA [Suspect]
     Indication: NEUROPATHY PERIPHERAL
     Dosage: 50 mg, UNK
     Dates: start: 201210

REACTIONS (4)
  - Fatigue [Unknown]
  - Somnolence [Unknown]
  - Sensation of heaviness [Unknown]
  - Limb discomfort [Unknown]
